FAERS Safety Report 6343896-9 (Version None)
Quarter: 2009Q3

REPORT INFORMATION
  Report Type: 
  Country: None (occurrence: None)
  Receive Date: 20090908
  Receipt Date: 20090827
  Transmission Date: 20100115
  Serious: Yes (Other)
  Sender: FDA-Public Use
  Company Number: US-PFIZER INC-2009237263

PATIENT

DRUGS (2)
  1. GEODON [Suspect]
  2. LAMICTAL [Suspect]

REACTIONS (2)
  - NEPHRITIS ALLERGIC [None]
  - RENAL IMPAIRMENT [None]
